FAERS Safety Report 26192071 (Version 1)
Quarter: 2025Q4

REPORT INFORMATION
  Report Type: Spontaneous
  Country: GB (occurrence: GB)
  Receive Date: 20251223
  Receipt Date: 20251223
  Transmission Date: 20260117
  Serious: Yes (Other)
  Sender: SANDOZ
  Company Number: None

PATIENT
  Age: 67 Year
  Sex: Female
  Weight: 150 kg

DRUGS (1)
  1. PANTOPRAZOLE [Suspect]
     Active Substance: PANTOPRAZOLE
     Indication: Gastritis
     Dosage: 40 MG, QD
     Dates: start: 20251122

REACTIONS (1)
  - Tongue pruritus [Not Recovered/Not Resolved]

NARRATIVE: CASE EVENT DATE: 20251210
